FAERS Safety Report 9687561 (Version 2)
Quarter: 2013Q4

REPORT INFORMATION
  Report Type: Report from Study
  Country: IT (occurrence: IT)
  Receive Date: 20131114
  Receipt Date: 20131211
  Transmission Date: 20140711
  Serious: Yes (Death, Hospitalization)
  Sender: FDA-Public Use
  Company Number: IT-TEVA-444140USA

PATIENT
  Sex: Male

DRUGS (5)
  1. BENDAMUSTINE [Suspect]
     Indication: MANTLE CELL LYMPHOMA
     Route: 042
     Dates: start: 20120125
  2. BENDAMUSTINE [Suspect]
     Route: 042
     Dates: start: 20120303
  3. BENDAMUSTINE [Suspect]
     Route: 042
     Dates: start: 20120328
  4. OFATUMUMAB [Suspect]
     Indication: MANTLE CELL LYMPHOMA
     Dates: start: 20120203
  5. OFATUMUMAB [Suspect]
     Dates: start: 20120326

REACTIONS (1)
  - Sepsis [Fatal]
